FAERS Safety Report 6420780-3 (Version None)
Quarter: 2009Q4

REPORT INFORMATION
  Report Type: 
  Country: None (occurrence: None)
  Receive Date: 20091030
  Receipt Date: 20091021
  Transmission Date: 20100525
  Serious: Yes (Hospitalization, Other)
  Sender: FDA-Public Use
  Company Number: US-BIOGENIDEC-2009BI033882

PATIENT
  Age: 24 Year
  Sex: Female

DRUGS (10)
  1. AVONEX [Suspect]
     Indication: MULTIPLE SCLEROSIS
     Route: 030
     Dates: start: 20020101, end: 20050101
  2. AVONEX [Suspect]
     Route: 030
     Dates: start: 20070101, end: 20080101
  3. AVONEX [Suspect]
     Route: 030
     Dates: start: 20080101
  4. LITHIUM [Concomitant]
     Indication: BIPOLAR DISORDER
     Route: 048
  5. PROZAC [Concomitant]
     Indication: BIPOLAR DISORDER
     Route: 048
  6. LAMICTAL [Concomitant]
     Indication: BIPOLAR DISORDER
     Route: 048
  7. WELLBUTRIN [Concomitant]
     Indication: BIPOLAR DISORDER
     Route: 048
  8. LEVAQUIN [Concomitant]
     Indication: BIPOLAR DISORDER
     Route: 048
  9. BACLOFEN [Concomitant]
     Indication: MUSCLE SPASMS
     Route: 048
  10. ZANAFLEX [Concomitant]
     Indication: MUSCLE SPASMS
     Route: 048

REACTIONS (5)
  - CONVULSION [None]
  - GALLBLADDER DISORDER [None]
  - MIGRAINE [None]
  - MUSCLE SPASMS [None]
  - TEMPERATURE INTOLERANCE [None]
